FAERS Safety Report 7477534-9 (Version None)
Quarter: 2011Q2

REPORT INFORMATION
  Report Type: 
  Country: None (occurrence: None)
  Receive Date: 20110513
  Receipt Date: 20110428
  Transmission Date: 20111010
  Serious: Yes (Other)
  Sender: FDA-Public Use
  Company Number: US-ELI_LILLY_AND_COMPANY-US201103003965

PATIENT
  Sex: Female

DRUGS (2)
  1. FORTEO [Suspect]
     Dosage: 20 UG, QD
  2. FORTEO [Suspect]
     Indication: OSTEOPOROSIS
     Dosage: 20 UG, QD
     Dates: start: 20110301

REACTIONS (6)
  - CONTUSION [None]
  - FALL [None]
  - HYPOACUSIS [None]
  - SPINAL DEFORMITY [None]
  - WEIGHT DECREASED [None]
  - MUSCLE SPASMS [None]
